FAERS Safety Report 18234954 (Version 1)
Quarter: 2020Q3

REPORT INFORMATION
  Report Type: Spontaneous
  Country: US (occurrence: US)
  Receive Date: 20200904
  Receipt Date: 20200904
  Transmission Date: 20201103
  Serious: No
  Sender: FDA-Public Use
  Company Number: US-009507513-2008USA008016

PATIENT
  Age: 70 Year
  Sex: Female

DRUGS (10)
  1. TOCILIZUMAB. [Concomitant]
     Active Substance: TOCILIZUMAB
  2. CEFEPIME [Concomitant]
     Active Substance: CEFEPIME HYDROCHLORIDE
  3. VANCOMYCIN [Concomitant]
     Active Substance: VANCOMYCIN
  4. AZITHROMYCIN ANHYDROUS. [Concomitant]
     Active Substance: AZITHROMYCIN ANHYDROUS
  5. METRONIDAZOLE. [Concomitant]
     Active Substance: METRONIDAZOLE
  6. LOPINAVIR (+) RITONAVIR [Suspect]
     Active Substance: LOPINAVIR\RITONAVIR
     Indication: COVID-19
  7. CEFTRIAXONE. [Concomitant]
     Active Substance: CEFTRIAXONE
  8. REBETOL [Suspect]
     Active Substance: RIBAVIRIN
     Indication: COVID-19
  9. HYDROXYCHLOROQUINE SULFATE. [Concomitant]
     Active Substance: HYDROXYCHLOROQUINE SULFATE
  10. CEFDINIR. [Concomitant]
     Active Substance: CEFDINIR

REACTIONS (1)
  - Product use in unapproved indication [Unknown]
